FAERS Safety Report 9852146 (Version 4)
Quarter: 2016Q1

REPORT INFORMATION
  Report Type: Spontaneous
  Country: US (occurrence: US)
  Receive Date: 20140129
  Receipt Date: 20160209
  Transmission Date: 20160526
  Serious: Yes (Hospitalization, Other)
  Sender: FDA-Public Use
  Company Number: US-ASTRAZENECA-2014SE05201

PATIENT
  Age: 24406 Day
  Sex: Female
  Weight: 65.8 kg

DRUGS (60)
  1. PROMETHAZINE HYDROCHLORIDE. [Concomitant]
     Active Substance: PROMETHAZINE HYDROCHLORIDE
     Indication: NAUSEA
     Route: 048
     Dates: start: 20130213
  2. CALTRATE WITH VITAMIN D [Concomitant]
     Active Substance: CALCIUM CARBONATE\CHOLECALCIFEROL
     Route: 048
     Dates: start: 20121227
  3. FLAXSEED [Concomitant]
     Active Substance: FLAX SEED
     Route: 048
     Dates: start: 20130627
  4. KETOROLAC TROMETHAMINE. [Concomitant]
     Active Substance: KETOROLAC TROMETHAMINE
     Dates: start: 20130705
  5. IBUPROFEN. [Concomitant]
     Active Substance: IBUPROFEN
     Route: 048
     Dates: start: 20130108
  6. ULTRAM/TRAMADOL [Concomitant]
  7. CHONDROITIN [Concomitant]
     Active Substance: CHONDROITIN
     Dates: start: 20110110
  8. ZELNORM [Concomitant]
     Active Substance: TEGASEROD MALEATE
     Dates: start: 20041207
  9. VITAMIN C [Concomitant]
     Active Substance: ASCORBIC ACID
     Route: 048
     Dates: start: 20130213
  10. ZINC SULFATE [Concomitant]
     Active Substance: ZINC SULFATE\ZINC SULFATE ANHYDROUS
     Indication: SUPPLEMENTATION THERAPY
     Route: 048
     Dates: start: 20130213
  11. HYDROCODONE HOMATROPINE [Concomitant]
     Indication: PAIN
     Dosage: 5-1.5 MG/5 ML, 10 ML EVERY 6 HOURS AS NEEDED
     Route: 048
     Dates: start: 20130213
  12. HYDROCODONE HOMATROPINE [Concomitant]
     Indication: COUGH
     Dosage: 5-1.5 MG/5 ML, 10 ML EVERY 6 HOURS AS NEEDED
     Route: 048
     Dates: start: 20130213
  13. HYDROCODONE HOMATROPINE [Concomitant]
     Indication: NASOPHARYNGITIS
     Dosage: 5-1.5 MG/5 ML, 10 ML EVERY 6 HOURS AS NEEDED
     Route: 048
     Dates: start: 20130213
  14. CENESTIN [Concomitant]
     Active Substance: ESTROGENS, CONJUGATED SYNTHETIC A
     Route: 048
     Dates: start: 20140318
  15. BACLOFEN. [Concomitant]
     Active Substance: BACLOFEN
  16. LORATADINE. [Concomitant]
     Active Substance: LORATADINE
  17. NEXIUM [Suspect]
     Active Substance: ESOMEPRAZOLE MAGNESIUM
     Route: 048
     Dates: start: 20050518
  18. FLEXERIL [Concomitant]
     Active Substance: CYCLOBENZAPRINE HYDROCHLORIDE
     Indication: MUSCULOSKELETAL DISORDER
     Route: 048
     Dates: start: 20130213
  19. ZOFRAN [Concomitant]
     Active Substance: ONDANSETRON HYDROCHLORIDE
     Dates: start: 20130107
  20. SULFAMETHOXAZOLE-TRIMETHOPRIM [Concomitant]
     Active Substance: SULFAMETHOXAZOLE\TRIMETHOPRIM
     Dosage: 800-160 MG TAKE ONE TABLET BY MOUTH TWO TIMES DAILY.
     Dates: start: 20130723
  21. ATENOLOL. [Concomitant]
     Active Substance: ATENOLOL
     Dosage: 50 MG
     Route: 048
     Dates: start: 20150115
  22. PROTONIX [Concomitant]
     Active Substance: PANTOPRAZOLE SODIUM
     Dates: start: 20130705
  23. FLAGYL [Concomitant]
     Active Substance: METRONIDAZOLE\METRONIDAZOLE HYDROCHLORIDE
     Route: 048
     Dates: start: 20130108
  24. LOVENOX [Concomitant]
     Active Substance: ENOXAPARIN SODIUM
     Route: 058
     Dates: start: 20130108
  25. LEVSIN [Concomitant]
     Active Substance: HYOSCYAMINE SULFATE
  26. LOPERAMIDE [Concomitant]
     Active Substance: LOPERAMIDE
  27. MIRTAZAPINE. [Concomitant]
     Active Substance: MIRTAZAPINE
     Dates: start: 20061020
  28. PROMETHAZINE HYDROCHLORIDE. [Concomitant]
     Active Substance: PROMETHAZINE HYDROCHLORIDE
     Indication: ANTIALLERGIC THERAPY
     Route: 048
     Dates: start: 20130213
  29. METOCLOPRAMIDE HYDROCHLORIDE. [Concomitant]
     Active Substance: METOCLOPRAMIDE HYDROCHLORIDE
     Dates: start: 20130705
  30. VANCOMYCIN [Concomitant]
     Active Substance: VANCOMYCIN
     Route: 048
     Dates: start: 20130108
  31. FAMOTIDINE. [Concomitant]
     Active Substance: FAMOTIDINE
  32. RANITIDINE [Concomitant]
     Active Substance: RANITIDINE\RANITIDINE HYDROCHLORIDE
  33. ZITHROMAX [Concomitant]
     Active Substance: AZITHROMYCIN DIHYDRATE
     Dates: start: 20050216
  34. SKELAXIN [Concomitant]
     Active Substance: METAXALONE
     Dates: start: 20070302
  35. ZINC SULFATE [Concomitant]
     Active Substance: ZINC SULFATE\ZINC SULFATE ANHYDROUS
     Indication: MINERAL SUPPLEMENTATION
     Route: 048
     Dates: start: 20130213
  36. ESTRADIOL. [Concomitant]
     Active Substance: ESTRADIOL
     Route: 048
     Dates: start: 20100104
  37. WELCHOL/COLESEVELAM [Concomitant]
     Dates: start: 20150115
  38. ALTACE [Concomitant]
     Active Substance: RAMIPRIL
     Dates: start: 20051205
  39. ALPRAZOLAM. [Concomitant]
     Active Substance: ALPRAZOLAM
     Dates: start: 20060918
  40. NEXIUM [Suspect]
     Active Substance: ESOMEPRAZOLE MAGNESIUM
     Route: 048
     Dates: start: 20040615
  41. HYDROCODONE HOMATROPINE [Concomitant]
     Indication: HYPERSENSITIVITY
     Dosage: 5-1.5 MG/5 ML, 10 ML EVERY 6 HOURS AS NEEDED
     Route: 048
     Dates: start: 20130213
  42. VISTARIL [Concomitant]
     Active Substance: HYDROXYZINE PAMOATE
     Indication: PRURITUS
     Route: 048
     Dates: start: 20130213
  43. ASPIRIN. [Concomitant]
     Active Substance: ASPIRIN
     Indication: DRUG HYPERSENSITIVITY
     Route: 048
     Dates: start: 20100104
  44. ESCITALOPRAM OXALATE. [Concomitant]
     Active Substance: ESCITALOPRAM OXALATE
  45. LORAZEPAM. [Concomitant]
     Active Substance: LORAZEPAM
     Dates: start: 20141222
  46. DIOVAN [Concomitant]
     Active Substance: VALSARTAN
     Dates: start: 20110110
  47. FLUTICASONE [Concomitant]
     Active Substance: FLUTICASONE\FLUTICASONE PROPIONATE
     Dates: start: 20131016
  48. FLEXERIL [Concomitant]
     Active Substance: CYCLOBENZAPRINE HYDROCHLORIDE
     Indication: MUSCLE SPASMS
     Route: 048
     Dates: start: 20130213
  49. CRESTOR [Concomitant]
     Active Substance: ROSUVASTATIN CALCIUM
     Indication: HYPOLIPIDAEMIA
     Route: 048
     Dates: start: 20100104
  50. GLUCOSAMINE [Concomitant]
     Active Substance: GLUCOSAMINE
     Dates: start: 20110110
  51. DESIPRAMINE [Concomitant]
     Active Substance: DESIPRAMINE
     Dates: start: 20041025
  52. AVELOX [Concomitant]
     Active Substance: MOXIFLOXACIN HYDROCHLORIDE
     Dates: start: 20060103
  53. SINGULAIR [Concomitant]
     Active Substance: MONTELUKAST SODIUM
     Dates: start: 20060103
  54. NEXIUM [Suspect]
     Active Substance: ESOMEPRAZOLE MAGNESIUM
     Route: 048
     Dates: start: 2004, end: 201301
  55. NEXIUM [Suspect]
     Active Substance: ESOMEPRAZOLE MAGNESIUM
     Route: 048
     Dates: start: 20121222
  56. CYMBALTA [Concomitant]
     Active Substance: DULOXETINE HYDROCHLORIDE
     Indication: ANTIDEPRESSANT THERAPY
     Route: 048
     Dates: start: 20100104
  57. VITAMIN D3 [Concomitant]
     Active Substance: CHOLECALCIFEROL
     Route: 048
     Dates: start: 20121227
  58. ACIDOPHILUS [Concomitant]
     Active Substance: LACTOBACILLUS ACIDOPHILUS
     Route: 048
     Dates: start: 20130627
  59. PSYLLIUM [Concomitant]
     Active Substance: PLANTAGO SEED
  60. SUCRALFATE. [Concomitant]
     Active Substance: SUCRALFATE
     Dates: start: 20140613

REACTIONS (8)
  - Ascites [Unknown]
  - Clostridium difficile colitis [Unknown]
  - Megacolon [Unknown]
  - Acute kidney injury [Unknown]
  - Colitis ischaemic [Unknown]
  - Respiratory failure [Unknown]
  - Pseudomembranous colitis [Unknown]
  - Septic shock [Unknown]

NARRATIVE: CASE EVENT DATE: 20130108
